FAERS Safety Report 7809362-6 (Version None)
Quarter: 2011Q4

REPORT INFORMATION
  Report Type: 
  Country: None (occurrence: None)
  Receive Date: 20111012
  Receipt Date: 20111005
  Transmission Date: 20120403
  Serious: Yes (Hospitalization, Other)
  Sender: FDA-Public Use
  Company Number: JP-ABBOTT-11P-087-0861308-00

PATIENT
  Sex: Male

DRUGS (10)
  1. REYATAZ [Suspect]
     Indication: HIV INFECTION
     Route: 048
     Dates: start: 20061103, end: 20100421
  2. NORVIR [Suspect]
     Indication: HIV INFECTION
     Route: 048
     Dates: start: 20061103, end: 20110215
  3. FUNGIZONE [Concomitant]
     Indication: ORAL CANDIDIASIS
     Dosage: 4-5 TIMES/DAY
     Dates: start: 20061006, end: 20061201
  4. PENTAMIDINE ISETHIONATE [Concomitant]
     Indication: PROPHYLAXIS
     Route: 055
     Dates: start: 20061006, end: 20070303
  5. PENTAMIDINE ISETHIONATE [Concomitant]
     Indication: PNEUMOCYSTIS JIROVECI PNEUMONIA
  6. ALLOPURINOL [Concomitant]
     Indication: HYPERURICAEMIA
     Dates: start: 20070519, end: 20080620
  7. ALLOPURINOL [Concomitant]
     Dates: start: 20081220, end: 20110215
  8. TRUVADA [Suspect]
     Indication: HIV INFECTION
     Route: 048
     Dates: start: 20061103, end: 20110215
  9. GANCICLOVIR [Concomitant]
     Indication: PRODUCT USED FOR UNKNOWN INDICATION
  10. DARUNAVIR ETHANOLATE [Concomitant]
     Indication: HIV INFECTION
     Route: 048
     Dates: start: 20100422, end: 20110215

REACTIONS (7)
  - JAUNDICE [None]
  - PLEURAL EFFUSION [None]
  - C-REACTIVE PROTEIN INCREASED [None]
  - OXYGEN SATURATION DECREASED [None]
  - PNEUMONIA [None]
  - BLOOD BILIRUBIN INCREASED [None]
  - WHITE BLOOD CELL COUNT INCREASED [None]
